FAERS Safety Report 10422766 (Version 1)
Quarter: 2014Q3

REPORT INFORMATION
  Report Type: Report from Study
  Country: CL (occurrence: CL)
  Receive Date: 20140902
  Receipt Date: 20140902
  Transmission Date: 20150326
  Serious: Yes (Hospitalization)
  Sender: FDA-Public Use
  Company Number: CL-ROCHE-1457054

PATIENT
  Age: 70 Year
  Sex: Female
  Weight: 51 kg

DRUGS (1)
  1. XELODA [Suspect]
     Active Substance: CAPECITABINE
     Indication: GASTRIC CANCER
     Dosage: 5-DAY-CYCLE
     Route: 048
     Dates: start: 20140710

REACTIONS (3)
  - Asthenia [Recovered/Resolved]
  - Protein total decreased [Unknown]
  - Weight decreased [Not Recovered/Not Resolved]
